FAERS Safety Report 9142857 (Version 1)
Quarter: 2013Q1

REPORT INFORMATION
  Report Type: Spontaneous
  Country: US (occurrence: US)
  Receive Date: 20130306
  Receipt Date: 20130306
  Transmission Date: 20140127
  Serious: Yes (Other)
  Sender: FDA-Public Use
  Company Number: US-ENDO PHARMACEUTICALS INC.-OPER20100089

PATIENT
  Sex: Male

DRUGS (1)
  1. OPANA ER [Suspect]
     Indication: PAIN
     Route: 048

REACTIONS (2)
  - Inappropriate schedule of drug administration [Not Recovered/Not Resolved]
  - Drug ineffective [Not Recovered/Not Resolved]
